FAERS Safety Report 4293435-1 (Version None)
Quarter: 2004Q1

REPORT INFORMATION
  Report Type: 
  Country: None (occurrence: None)
  Receive Date: 20040212
  Receipt Date: 20030625
  Transmission Date: 20041129
  Serious: No
  Sender: FDA-Public Use
  Company Number: US-GLAXOSMITHKLINE-A0413947A

PATIENT
  Age: 64 Year
  Sex: Female

DRUGS (2)
  1. PAXIL [Suspect]
     Route: 048
     Dates: start: 19930101
  2. BLOOD PRESSURE MEDICATION [Concomitant]

REACTIONS (1)
  - AMNESIA [None]
